FAERS Safety Report 7231594-9 (Version None)
Quarter: 2011Q1

REPORT INFORMATION
  Report Type: 
  Country: None (occurrence: None)
  Receive Date: 20110118
  Receipt Date: 20110104
  Transmission Date: 20110831
  Serious: Yes (Death, Other)
  Sender: FDA-Public Use
  Company Number: US-ELI_LILLY_AND_COMPANY-US201101001017

PATIENT
  Age: 71 Year
  Sex: Male

DRUGS (7)
  1. LISINOPRIL [Concomitant]
  2. EFFIENT [Suspect]
     Indication: STENT PLACEMENT
     Dosage: 10 MG, UNK
     Dates: start: 20101203
  3. LASIX [Concomitant]
  4. AMARYL [Concomitant]
  5. ASPIRIN [Concomitant]
  6. TOPROL-XL [Concomitant]
  7. METFORMIN [Concomitant]

REACTIONS (3)
  - ACUTE CORONARY SYNDROME [None]
  - CORONARY ARTERY DISEASE [None]
  - THROMBOSIS IN DEVICE [None]
